FAERS Safety Report 23686246 (Version 1)
Quarter: 2024Q1

REPORT INFORMATION
  Report Type: Spontaneous
  Country: US (occurrence: None)
  Receive Date: 20240329
  Receipt Date: 20240329
  Transmission Date: 20240410
  Serious: No
  Sender: FDA-Public Use
  Company Number: 2024A063721

PATIENT
  Sex: Female

DRUGS (1)
  1. FASLODEX [Suspect]
     Active Substance: FULVESTRANT
     Route: 030

REACTIONS (8)
  - Pain [Unknown]
  - Kyphosis [Unknown]
  - Gait disturbance [Unknown]
  - Decreased activity [Unknown]
  - Injection site mass [Unknown]
  - Nerve compression [Unknown]
  - Fatigue [Unknown]
  - Sciatica [Unknown]
